FAERS Safety Report 13587559 (Version 1)
Quarter: 2017Q2

REPORT INFORMATION
  Report Type: Spontaneous
  Country: None (occurrence: US)
  Receive Date: 20170526
  Receipt Date: 20170526
  Transmission Date: 20170830
  Serious: Yes (Hospitalization)
  Sender: FDA-Public Use
  Company Number: None

PATIENT
  Age: 63 Year
  Sex: Female

DRUGS (1)
  1. IBRANCE [Suspect]
     Active Substance: PALBOCICLIB
     Indication: BREAST CANCER FEMALE
     Dosage: 125MG TAKE ONE TABLET DAILY FOR 21 DAYS PO
     Route: 048
     Dates: start: 20160803

REACTIONS (1)
  - Pneumonia viral [None]

NARRATIVE: CASE EVENT DATE: 20170501
